FAERS Safety Report 17464260 (Version 3)
Quarter: 2020Q1

REPORT INFORMATION
  Report Type: Report from Study
  Country: BR (occurrence: BR)
  Receive Date: 20200226
  Receipt Date: 20200313
  Transmission Date: 20200409
  Serious: Yes (Hospitalization, Other)
  Sender: FDA-Public Use
  Company Number: BR-BRISTOL-MYERS SQUIBB COMPANY-BMS-2020-014923

PATIENT
  Age: 68 Year
  Sex: Male

DRUGS (7)
  1. FINASTERIDE. [Concomitant]
     Active Substance: FINASTERIDE
     Indication: URINARY RETENTION
     Dosage: 5 MILLIGRAM, QD
     Route: 048
     Dates: start: 201905
  2. GABAPENTIN. [Concomitant]
     Active Substance: GABAPENTIN
     Indication: PAIN
     Dosage: 350 MILLIGRAM, BID
     Route: 048
     Dates: start: 201905
  3. MORPHINE [Concomitant]
     Active Substance: MORPHINE
     Indication: PAIN
     Dosage: 1 DOSAGE FORM
     Route: 048
     Dates: start: 201905
  4. RIVAROXABAN [Concomitant]
     Active Substance: RIVAROXABAN
     Indication: DEEP VEIN THROMBOSIS
     Dosage: 20 MILLIGRAM, QD
     Route: 048
     Dates: start: 201905
  5. BEMPEGALDESLEUKIN [Suspect]
     Active Substance: BEMPEGALDESLEUKIN
     Indication: RENAL CELL CARCINOMA
     Dosage: 0.006 MILLIGRAM/KILOGRAM, ONCE PER CYCLE
     Route: 042
     Dates: start: 20191125
  6. DOXAZOSIN [Concomitant]
     Active Substance: DOXAZOSIN MESYLATE
     Indication: URINARY RETENTION
     Dosage: 4 MILLIGRAM, QD
     Route: 048
     Dates: start: 201905
  7. NIVOLUMAB [Suspect]
     Active Substance: NIVOLUMAB
     Indication: RENAL CELL CARCINOMA
     Dosage: 360 MILLIGRAM, ONCE PER CYCLE
     Route: 042
     Dates: start: 20191125

REACTIONS (2)
  - Sepsis [Recovering/Resolving]
  - Urinary tract infection [Recovering/Resolving]

NARRATIVE: CASE EVENT DATE: 20200214
